FAERS Safety Report 5907614-8 (Version None)
Quarter: 2008Q4

REPORT INFORMATION
  Report Type: 
  Country: None (occurrence: None)
  Receive Date: 20081003
  Receipt Date: 20080923
  Transmission Date: 20090506
  Serious: Yes (Hospitalization)
  Sender: FDA-Public Use
  Company Number: GB-ROCHE-587821

PATIENT
  Sex: Female

DRUGS (2)
  1. ORLISTAT [Suspect]
     Indication: OBESITY
     Route: 048
     Dates: start: 20080601, end: 20080914
  2. ACETAMINOPHEN [Concomitant]
     Indication: ANALGESIC THERAPY
     Route: 048

REACTIONS (1)
  - OVARIAN CYST [None]
